FAERS Safety Report 9145836 (Version 1)
Quarter: 2013Q1

REPORT INFORMATION
  Report Type: Spontaneous
  Country: FR (occurrence: FR)
  Receive Date: 20130307
  Receipt Date: 20130307
  Transmission Date: 20140127
  Serious: Yes (Hospitalization)
  Sender: FDA-Public Use
  Company Number: FR-JNJFOC-20130301794

PATIENT
  Age: 20 Year
  Sex: Female

DRUGS (10)
  1. IXPRIM [Suspect]
     Indication: PAIN
     Route: 048
     Dates: start: 20110718, end: 20110720
  2. AUGMENTIN [Suspect]
     Indication: ANTIBIOTIC PROPHYLAXIS
     Route: 042
     Dates: start: 20110718, end: 20110718
  3. DEXAMETHASONE [Suspect]
     Indication: SURGERY
     Route: 042
     Dates: start: 20110718, end: 20110718
  4. PROPOFOL [Suspect]
     Indication: SURGERY
     Route: 042
     Dates: start: 20110718, end: 20110718
  5. SUFENTANIL [Suspect]
     Indication: SURGERY
     Route: 042
     Dates: start: 20110718, end: 20110718
  6. SEVOFLURANE [Suspect]
     Indication: SURGERY
     Route: 042
     Dates: start: 20110718, end: 20110718
  7. ACUPAN [Suspect]
     Indication: SURGERY
     Route: 042
     Dates: start: 20110718, end: 20110718
  8. PROFENID [Suspect]
     Indication: SURGERY
     Route: 042
     Dates: start: 20110718, end: 20110718
  9. DROLEPTAN [Suspect]
     Indication: SURGERY
     Route: 042
     Dates: start: 20110718, end: 20110718
  10. FLAGYL [Suspect]
     Indication: SURGERY
     Route: 042
     Dates: start: 20110718, end: 20110718

REACTIONS (1)
  - Acute generalised exanthematous pustulosis [Recovered/Resolved]
